FAERS Safety Report 25818469 (Version 1)
Quarter: 2025Q3

REPORT INFORMATION
  Report Type: Spontaneous
  Country: TR (occurrence: TR)
  Receive Date: 20250918
  Receipt Date: 20250918
  Transmission Date: 20251020
  Serious: Yes (Other)
  Sender: Alora Pharma
  Company Number: TR-ACELLA PHARMACEUTICALS, LLC-2025ALO02495

PATIENT
  Age: 42 Year
  Sex: Female

DRUGS (5)
  1. PHENYTOIN SODIUM [Suspect]
     Active Substance: PHENYTOIN SODIUM
     Indication: Epilepsy
  2. CARBAMAZEPINE [Suspect]
     Active Substance: CARBAMAZEPINE
  3. LEVETIRACETAM [Suspect]
     Active Substance: LEVETIRACETAM
  4. FLUOXETINE [Suspect]
     Active Substance: FLUOXETINE HYDROCHLORIDE
  5. VALPROIC ACID [Suspect]
     Active Substance: VALPROIC ACID

REACTIONS (5)
  - Drug interaction [Unknown]
  - Drug interaction [Unknown]
  - Drug interaction [Unknown]
  - Drug interaction [Unknown]
  - Toxicity to various agents [Unknown]

NARRATIVE: CASE EVENT DATE: 20230101
